FAERS Safety Report 12583574 (Version 1)
Quarter: 2016Q3

REPORT INFORMATION
  Report Type: Spontaneous
  Country: US (occurrence: US)
  Receive Date: 20160722
  Receipt Date: 20160722
  Transmission Date: 20161109
  Serious: No
  Sender: FDA-Public Use
  Company Number: US-GALDERMA-US15005276

PATIENT
  Sex: Female

DRUGS (1)
  1. ADAPALENE (ADAPALENE) [Suspect]
     Active Substance: ADAPALENE
     Route: 061

REACTIONS (1)
  - Dermatitis [Unknown]
